FAERS Safety Report 5939578-5 (Version None)
Quarter: 2008Q4

REPORT INFORMATION
  Report Type: 
  Country: None (occurrence: None)
  Receive Date: 20081030
  Receipt Date: 20081015
  Transmission Date: 20090506
  Serious: Yes (Death, Hospitalization, Other)
  Sender: FDA-Public Use
  Company Number: 2007US001802

PATIENT
  Age: 50 Year
  Sex: Male

DRUGS (2)
  1. PROGRAF [Suspect]
     Dosage: 3 MG, BID,; 1 G, BID
     Dates: start: 20050217, end: 20070625
  2. PROGRAF [Suspect]
     Dosage: 3 MG, BID,; 1 G, BID
     Dates: start: 20050217, end: 20070625

REACTIONS (19)
  - ATRIAL FLUTTER [None]
  - ATRIOVENTRICULAR BLOCK SECOND DEGREE [None]
  - BLOOD PRESSURE INCREASED [None]
  - CHOLECYSTITIS [None]
  - CHOLELITHIASIS [None]
  - CLOSTRIDIUM DIFFICILE COLITIS [None]
  - HEPATIC CIRRHOSIS [None]
  - HYPERKALAEMIA [None]
  - INFUSION SITE REACTION [None]
  - LARGE INTESTINE PERFORATION [None]
  - METABOLIC ACIDOSIS [None]
  - PERITONITIS [None]
  - PLATELET COUNT DECREASED [None]
  - PNEUMOPERITONEUM [None]
  - PROCEDURAL HYPOTENSION [None]
  - RENAL FAILURE ACUTE [None]
  - RIGHT VENTRICULAR HYPERTROPHY [None]
  - URINARY TRACT INFECTION [None]
  - WOUND [None]
